FAERS Safety Report 6946765-6 (Version None)
Quarter: 2010Q3

REPORT INFORMATION
  Report Type: 
  Country: None (occurrence: None)
  Receive Date: 20100825
  Receipt Date: 20100812
  Transmission Date: 20110219
  Serious: Yes (Death, Life-Threatening, Hospitalization, Other)
  Sender: FDA-Public Use
  Company Number: CL-201-2010

PATIENT
  Age: 6 Year
  Sex: Male

DRUGS (1)
  1. ONDANSETRON [Suspect]
     Indication: NAUSEA
     Dosage: 2 MG SUBLINGUAL
     Route: 060

REACTIONS (9)
  - BLOOD POTASSIUM INCREASED [None]
  - BRONCHOPNEUMONIA [None]
  - CARDIAC ARREST [None]
  - DRUG INEFFECTIVE [None]
  - ECHOVIRUS TEST POSITIVE [None]
  - HYPERTHERMIA MALIGNANT [None]
  - INFECTIVE THROMBOSIS [None]
  - LIVER DISORDER [None]
  - LYMPHADENOPATHY [None]
